FAERS Safety Report 18809303 (Version 1)
Quarter: 2021Q1

REPORT INFORMATION
  Report Type: Spontaneous
  Country: BR (occurrence: BR)
  Receive Date: 20210129
  Receipt Date: 20210129
  Transmission Date: 20210419
  Serious: Yes (Other)
  Sender: FDA-Public Use
  Company Number: BR-009507513-2101BRA012670

PATIENT
  Sex: Female
  Weight: 54 kg

DRUGS (5)
  1. JANUVIA [Suspect]
     Active Substance: SITAGLIPTIN PHOSPHATE
     Indication: TYPE 2 DIABETES MELLITUS
     Dosage: 50 MILLIGRAM, 1 TABLET, DAILY, ORALLY
     Route: 048
     Dates: start: 2016, end: 202010
  2. DIOVAN [Concomitant]
     Active Substance: VALSARTAN
     Dosage: 1 TABLET DAILY, ORAL
     Route: 048
     Dates: start: 202011
  3. ATENOLOL. [Concomitant]
     Active Substance: ATENOLOL
     Indication: HYPERTENSION
     Dosage: 1 TABLET DAILY, ORAL
     Route: 048
  4. JANUVIA [Suspect]
     Active Substance: SITAGLIPTIN PHOSPHATE
     Dosage: 100 MILLIGRAM, 1 TABLET, DAILY, ORALLY
     Route: 048
     Dates: start: 202010
  5. DIOVAN [Concomitant]
     Active Substance: VALSARTAN
     Indication: HYPERTENSION
     Dosage: 2 TABLET DAILY, ORAL
     Route: 048
     Dates: end: 202011

REACTIONS (4)
  - Blood pressure abnormal [Not Recovered/Not Resolved]
  - Blood glucose increased [Unknown]
  - Malaise [Unknown]
  - Nephrolithiasis [Unknown]

NARRATIVE: CASE EVENT DATE: 202010
